FAERS Safety Report 4362857-2 (Version None)
Quarter: 2004Q2

REPORT INFORMATION
  Report Type: 
  Country: None (occurrence: None)
  Receive Date: 20040517
  Receipt Date: 20040402
  Transmission Date: 20050107
  Serious: No
  Sender: FDA-Public Use
  Company Number: S04-USA-01823-01

PATIENT
  Age: 92 Year
  Sex: Female

DRUGS (7)
  1. NAMENDA [Suspect]
     Dosage: 5 MG QD PO
     Route: 048
     Dates: start: 20040302, end: 20040308
  2. NAMENDA [Suspect]
     Dosage: 10 MG QD PO
     Route: 048
     Dates: start: 20040309, end: 20040315
  3. NAMENDA [Suspect]
     Dosage: 15 MG QD PO
     Route: 048
     Dates: start: 20040316, end: 20040322
  4. NAMENDA [Suspect]
     Dosage: 10 MG BID PO
     Route: 048
     Dates: start: 20040323
  5. ARICEPT [Concomitant]
  6. ARTHROTEC [Concomitant]
  7. EMPHYSEMA [Concomitant]

REACTIONS (2)
  - CONSTIPATION [None]
  - DIZZINESS [None]
